FAERS Safety Report 24044613 (Version 1)
Quarter: 2024Q3

REPORT INFORMATION
  Report Type: Spontaneous
  Country: US (occurrence: US)
  Receive Date: 20240703
  Receipt Date: 20240703
  Transmission Date: 20241016
  Serious: Yes (Other)
  Sender: NOVITIUM PHARMA
  Company Number: US-NOVITIUMPHARMA-2024USNVP01145

PATIENT
  Age: 42 Year
  Sex: Male

DRUGS (11)
  1. PREDNISONE [Suspect]
     Active Substance: PREDNISONE
     Indication: Immunosuppression
  2. HYDROXYCHLOROQUINE SULFATE [Suspect]
     Active Substance: HYDROXYCHLOROQUINE SULFATE
     Indication: Immunosuppression
  3. METHOTREXATE [Concomitant]
     Active Substance: METHOTREXATE
     Indication: Immunosuppression
  4. ADALIMUMAB [Concomitant]
     Active Substance: ADALIMUMAB\ISOPROPYL ALCOHOL
     Indication: Immunosuppression
  5. CERTOLIZUMAB PEGOL [Concomitant]
     Active Substance: CERTOLIZUMAB PEGOL
     Indication: Immunosuppression
  6. RITUXIMAB [Concomitant]
     Active Substance: RITUXIMAB
     Indication: Immunosuppression
  7. TOFACITINIB [Concomitant]
     Active Substance: TOFACITINIB
     Indication: Immunosuppression
  8. UPADACITINIB [Concomitant]
     Active Substance: UPADACITINIB
     Indication: Immunosuppression
  9. TOCILIZUMAB [Concomitant]
     Active Substance: TOCILIZUMAB
     Indication: Immunosuppression
  10. ANAKINRA [Concomitant]
     Active Substance: ANAKINRA
     Indication: Immunosuppression
  11. CANAKINUMAB [Concomitant]
     Active Substance: CANAKINUMAB
     Indication: Immunosuppression

REACTIONS (1)
  - Whipple^s disease [Recovering/Resolving]
